FAERS Safety Report 24717891 (Version 3)
Quarter: 2025Q2

REPORT INFORMATION
  Report Type: Spontaneous
  Country: CA (occurrence: CA)
  Receive Date: 20241210
  Receipt Date: 20250509
  Transmission Date: 20250717
  Serious: Yes (Hospitalization, Other)
  Sender: MYLAN
  Company Number: CA-MYLANLABS-2024M1109495

PATIENT
  Age: 11 Year
  Sex: Male

DRUGS (460)
  1. CELECOXIB [Suspect]
     Active Substance: CELECOXIB
     Indication: Pain management
     Dosage: 100 MILLIGRAM, BID (2 EVERY 1 DAYS)
  2. CELECOXIB [Suspect]
     Active Substance: CELECOXIB
     Dosage: 100 MILLIGRAM, BID (2 EVERY 1 DAYS)
     Route: 048
  3. CELECOXIB [Suspect]
     Active Substance: CELECOXIB
     Dosage: 100 MILLIGRAM, BID (2 EVERY 1 DAYS)
     Route: 048
  4. CELECOXIB [Suspect]
     Active Substance: CELECOXIB
     Dosage: 100 MILLIGRAM, BID (2 EVERY 1 DAYS)
  5. GABAPENTIN [Suspect]
     Active Substance: GABAPENTIN
     Indication: Pain management
     Dosage: 600 MILLIGRAM, BID (2 EVERY 1 DAY)
  6. GABAPENTIN [Suspect]
     Active Substance: GABAPENTIN
     Indication: Back pain
     Dosage: 600 MILLIGRAM, BID (2 EVERY 1 DAY)
  7. GABAPENTIN [Suspect]
     Active Substance: GABAPENTIN
     Dosage: 600 MILLIGRAM, BID (2 EVERY 1 DAY)
     Route: 048
  8. GABAPENTIN [Suspect]
     Active Substance: GABAPENTIN
     Dosage: 600 MILLIGRAM, BID (2 EVERY 1 DAY)
     Route: 048
  9. GABAPENTIN [Suspect]
     Active Substance: GABAPENTIN
     Dosage: 600 MILLIGRAM, TID (3 EVERY 1 DAY)
  10. GABAPENTIN [Suspect]
     Active Substance: GABAPENTIN
     Dosage: 600 MILLIGRAM, TID (3 EVERY 1 DAY)
  11. GABAPENTIN [Suspect]
     Active Substance: GABAPENTIN
     Dosage: 600 MILLIGRAM, TID (3 EVERY 1 DAY)
     Route: 048
  12. GABAPENTIN [Suspect]
     Active Substance: GABAPENTIN
     Dosage: 600 MILLIGRAM, TID (3 EVERY 1 DAY)
     Route: 048
  13. VITAMIN C [Suspect]
     Active Substance: ASCORBIC ACID
     Indication: Product used for unknown indication
     Dosage: 1500 MILLIGRAM, QD (1 EVERY 1 DAY)
  14. VITAMIN C [Suspect]
     Active Substance: ASCORBIC ACID
     Dosage: 1500 MILLIGRAM, QD (1 EVERY 1 DAY)
     Route: 048
  15. VITAMIN C [Suspect]
     Active Substance: ASCORBIC ACID
     Dosage: 1500 MILLIGRAM, QD (1 EVERY 1 DAY)
     Route: 048
  16. VITAMIN C [Suspect]
     Active Substance: ASCORBIC ACID
     Dosage: 1500 MILLIGRAM, QD (1 EVERY 1 DAY)
  17. ARIPIPRAZOLE [Suspect]
     Active Substance: ARIPIPRAZOLE
     Indication: Product used for unknown indication
     Dosage: 2 MILLIGRAM, TID (3 EVERY 1 DAY)
  18. ARIPIPRAZOLE [Suspect]
     Active Substance: ARIPIPRAZOLE
     Dosage: 2 MILLIGRAM, TID (3 EVERY 1 DAY)
     Route: 048
  19. ARIPIPRAZOLE [Suspect]
     Active Substance: ARIPIPRAZOLE
     Dosage: 2 MILLIGRAM, TID (3 EVERY 1 DAY)
     Route: 048
  20. ARIPIPRAZOLE [Suspect]
     Active Substance: ARIPIPRAZOLE
     Dosage: 2 MILLIGRAM, TID (3 EVERY 1 DAY)
  21. ARIPIPRAZOLE [Suspect]
     Active Substance: ARIPIPRAZOLE
     Dosage: 2 MILLIGRAM, Q8H (1 EVERY 8 HOURS)
     Route: 048
  22. ARIPIPRAZOLE [Suspect]
     Active Substance: ARIPIPRAZOLE
     Dosage: 2 MILLIGRAM, Q8H (1 EVERY 8 HOURS)
     Route: 048
  23. ARIPIPRAZOLE [Suspect]
     Active Substance: ARIPIPRAZOLE
     Dosage: 2 MILLIGRAM, Q8H (1 EVERY 8 HOURS)
  24. ARIPIPRAZOLE [Suspect]
     Active Substance: ARIPIPRAZOLE
     Dosage: 2 MILLIGRAM, Q8H (1 EVERY 8 HOURS)
  25. ARIPIPRAZOLE [Suspect]
     Active Substance: ARIPIPRAZOLE
     Dosage: 2 MILLIGRAM, QD (1 EVERY 1 DAYS)
  26. ARIPIPRAZOLE [Suspect]
     Active Substance: ARIPIPRAZOLE
     Dosage: 2 MILLIGRAM, QD (1 EVERY 1 DAYS)
     Route: 048
  27. ARIPIPRAZOLE [Suspect]
     Active Substance: ARIPIPRAZOLE
     Dosage: 2 MILLIGRAM, QD (1 EVERY 1 DAYS)
  28. ARIPIPRAZOLE [Suspect]
     Active Substance: ARIPIPRAZOLE
     Dosage: 2 MILLIGRAM, QD (1 EVERY 1 DAYS)
     Route: 048
  29. ARIPIPRAZOLE [Suspect]
     Active Substance: ARIPIPRAZOLE
     Indication: Product used for unknown indication
     Dosage: 2 MILLIGRAM, QD (1 EVERY 1 DAYS)
  30. ARIPIPRAZOLE [Suspect]
     Active Substance: ARIPIPRAZOLE
     Dosage: 2 MILLIGRAM, QD (1 EVERY 1 DAYS)
     Route: 048
  31. ARIPIPRAZOLE [Suspect]
     Active Substance: ARIPIPRAZOLE
     Dosage: 2 MILLIGRAM, QD (1 EVERY 1 DAYS)
     Route: 048
  32. ARIPIPRAZOLE [Suspect]
     Active Substance: ARIPIPRAZOLE
     Dosage: 2 MILLIGRAM, QD (1 EVERY 1 DAYS)
  33. BACLOFEN [Suspect]
     Active Substance: BACLOFEN
     Indication: Product used for unknown indication
     Dosage: 20 MILLIGRAM, TID (3 EVERY 1 DAY)
  34. BACLOFEN [Suspect]
     Active Substance: BACLOFEN
     Dosage: 20 MILLIGRAM, TID (3 EVERY 1 DAY)
  35. BACLOFEN [Suspect]
     Active Substance: BACLOFEN
     Dosage: 20 MILLIGRAM, TID (3 EVERY 1 DAY)
     Route: 048
  36. BACLOFEN [Suspect]
     Active Substance: BACLOFEN
     Dosage: 20 MILLIGRAM, TID (3 EVERY 1 DAY)
     Route: 048
  37. BACLOFEN [Suspect]
     Active Substance: BACLOFEN
     Dosage: 20 MILLIGRAM, Q8H (1 EVERY 8 HOURS)
  38. BACLOFEN [Suspect]
     Active Substance: BACLOFEN
     Dosage: 20 MILLIGRAM, Q8H (1 EVERY 8 HOURS)
  39. BACLOFEN [Suspect]
     Active Substance: BACLOFEN
     Dosage: 20 MILLIGRAM, Q8H (1 EVERY 8 HOURS)
     Route: 048
  40. BACLOFEN [Suspect]
     Active Substance: BACLOFEN
     Dosage: 20 MILLIGRAM, Q8H (1 EVERY 8 HOURS)
     Route: 048
  41. BISACODYL [Suspect]
     Active Substance: BISACODYL
     Indication: Product used for unknown indication
     Dosage: 5 MILLIGRAM, QD (1 EVERY 1 DAYS)
     Route: 065
  42. BISACODYL [Suspect]
     Active Substance: BISACODYL
     Dosage: 5 MILLIGRAM, QD (1 EVERY 1 DAYS)
  43. BISACODYL [Suspect]
     Active Substance: BISACODYL
     Dosage: 5 MILLIGRAM, QD (1 EVERY 1 DAYS)
  44. BISACODYL [Suspect]
     Active Substance: BISACODYL
     Dosage: 5 MILLIGRAM, QD (1 EVERY 1 DAYS)
     Route: 065
  45. BISACODYL [Suspect]
     Active Substance: BISACODYL
     Dosage: 5 MILLIGRAM, QD (1 EVERY 1 DAYS)
     Route: 048
  46. BISACODYL [Suspect]
     Active Substance: BISACODYL
     Dosage: 5 MILLIGRAM, QD (1 EVERY 1 DAYS)
  47. BISACODYL [Suspect]
     Active Substance: BISACODYL
     Dosage: 5 MILLIGRAM, QD (1 EVERY 1 DAYS)
  48. BISACODYL [Suspect]
     Active Substance: BISACODYL
     Dosage: 5 MILLIGRAM, QD (1 EVERY 1 DAYS)
     Route: 048
  49. CHOLECALCIFEROL [Suspect]
     Active Substance: CHOLECALCIFEROL
     Indication: Vitamin supplementation
  50. CHOLECALCIFEROL [Suspect]
     Active Substance: CHOLECALCIFEROL
     Route: 065
  51. CHOLECALCIFEROL [Suspect]
     Active Substance: CHOLECALCIFEROL
     Route: 065
  52. CHOLECALCIFEROL [Suspect]
     Active Substance: CHOLECALCIFEROL
  53. CHOLECALCIFEROL [Suspect]
     Active Substance: CHOLECALCIFEROL
     Indication: Vitamin supplementation
     Dosage: 2000 INTERNATIONAL UNIT, QD (1 EVERY 1 DAY)
  54. CHOLECALCIFEROL [Suspect]
     Active Substance: CHOLECALCIFEROL
     Dosage: 2000 INTERNATIONAL UNIT, QD (1 EVERY 1 DAY)
     Route: 048
  55. CHOLECALCIFEROL [Suspect]
     Active Substance: CHOLECALCIFEROL
     Dosage: 2000 INTERNATIONAL UNIT, QD (1 EVERY 1 DAY)
     Route: 048
  56. CHOLECALCIFEROL [Suspect]
     Active Substance: CHOLECALCIFEROL
     Dosage: 2000 INTERNATIONAL UNIT, QD (1 EVERY 1 DAY)
  57. CLOBAZAM [Suspect]
     Active Substance: CLOBAZAM
     Indication: Back pain
     Dosage: 20 MILLIGRAM, BID (2 EVERY 1 DAYS)
  58. CLOBAZAM [Suspect]
     Active Substance: CLOBAZAM
     Dosage: 20 MILLIGRAM, BID (2 EVERY 1 DAYS)
     Route: 048
  59. CLOBAZAM [Suspect]
     Active Substance: CLOBAZAM
     Dosage: 20 MILLIGRAM, BID (2 EVERY 1 DAYS)
     Route: 048
  60. CLOBAZAM [Suspect]
     Active Substance: CLOBAZAM
     Dosage: 20 MILLIGRAM, BID (2 EVERY 1 DAYS)
  61. CLONIDINE [Suspect]
     Active Substance: CLONIDINE
     Indication: Product used for unknown indication
     Dosage: 0.05 MILLIGRAM, QD (1 EVERY 1 DAY)
  62. CLONIDINE [Suspect]
     Active Substance: CLONIDINE
     Dosage: 0.05 MILLIGRAM, QD (1 EVERY 1 DAY)
  63. CLONIDINE [Suspect]
     Active Substance: CLONIDINE
     Dosage: 0.05 MILLIGRAM, QD (1 EVERY 1 DAY)
     Route: 048
  64. CLONIDINE [Suspect]
     Active Substance: CLONIDINE
     Dosage: 0.05 MILLIGRAM, QD (1 EVERY 1 DAY)
     Route: 048
  65. CLONIDINE [Suspect]
     Active Substance: CLONIDINE
     Dosage: 0.1 MILLIGRAM, QD (1 EVERY 1 DAY)
  66. CLONIDINE [Suspect]
     Active Substance: CLONIDINE
     Dosage: 0.1 MILLIGRAM, QD (1 EVERY 1 DAY)
  67. CLONIDINE [Suspect]
     Active Substance: CLONIDINE
     Dosage: 0.1 MILLIGRAM, QD (1 EVERY 1 DAY)
     Route: 048
  68. CLONIDINE [Suspect]
     Active Substance: CLONIDINE
     Dosage: 0.1 MILLIGRAM, QD (1 EVERY 1 DAY)
     Route: 048
  69. DIMENHYDRINATE [Suspect]
     Active Substance: DIMENHYDRINATE
     Indication: Constipation
     Dosage: 25 MILLIGRAM, QD (1 EVERY 1 DAYS)
  70. DIMENHYDRINATE [Suspect]
     Active Substance: DIMENHYDRINATE
     Dosage: 25 MILLIGRAM, QD (1 EVERY 1 DAYS)
  71. DIMENHYDRINATE [Suspect]
     Active Substance: DIMENHYDRINATE
     Dosage: 25 MILLIGRAM, QD (1 EVERY 1 DAYS)
     Route: 048
  72. DIMENHYDRINATE [Suspect]
     Active Substance: DIMENHYDRINATE
     Dosage: 25 MILLIGRAM, QD (1 EVERY 1 DAYS)
     Route: 048
  73. DIMENHYDRINATE [Suspect]
     Active Substance: DIMENHYDRINATE
     Dosage: 20 MILLIGRAM, QD (1 EVERY 1 DAYS)
  74. DIMENHYDRINATE [Suspect]
     Active Substance: DIMENHYDRINATE
     Dosage: 20 MILLIGRAM, QD (1 EVERY 1 DAYS)
  75. DIMENHYDRINATE [Suspect]
     Active Substance: DIMENHYDRINATE
     Dosage: 20 MILLIGRAM, QD (1 EVERY 1 DAYS)
     Route: 048
  76. DIMENHYDRINATE [Suspect]
     Active Substance: DIMENHYDRINATE
     Dosage: 20 MILLIGRAM, QD (1 EVERY 1 DAYS)
     Route: 048
  77. DIPHENHYDRAMINE [Suspect]
     Active Substance: DIPHENHYDRAMINE
     Indication: Pruritus
     Dosage: 12.5 MILLIGRAM, QID (4 EVERY 1 DAY)
  78. DIPHENHYDRAMINE [Suspect]
     Active Substance: DIPHENHYDRAMINE
     Dosage: 12.5 MILLIGRAM, QID (4 EVERY 1 DAY)
     Route: 048
  79. DIPHENHYDRAMINE [Suspect]
     Active Substance: DIPHENHYDRAMINE
     Dosage: 12.5 MILLIGRAM, QID (4 EVERY 1 DAY)
     Route: 048
  80. DIPHENHYDRAMINE [Suspect]
     Active Substance: DIPHENHYDRAMINE
     Dosage: 12.5 MILLIGRAM, QID (4 EVERY 1 DAY)
  81. DOCONEXENT [Suspect]
     Active Substance: DOCONEXENT
     Indication: Product used for unknown indication
  82. DOCONEXENT [Suspect]
     Active Substance: DOCONEXENT
     Route: 065
  83. DOCONEXENT [Suspect]
     Active Substance: DOCONEXENT
     Route: 065
  84. DOCONEXENT [Suspect]
     Active Substance: DOCONEXENT
  85. ELIGARD [Suspect]
     Active Substance: LEUPROLIDE ACETATE
     Indication: Precocious puberty
     Dosage: 7.5 MILLIGRAM, MONTHLY (1 EVERY 1 MONTH)
  86. ELIGARD [Suspect]
     Active Substance: LEUPROLIDE ACETATE
     Dosage: 7.5 MILLIGRAM, MONTHLY (1 EVERY 1 MONTH)
     Route: 030
  87. ELIGARD [Suspect]
     Active Substance: LEUPROLIDE ACETATE
     Dosage: 7.5 MILLIGRAM, MONTHLY (1 EVERY 1 MONTH)
     Route: 030
  88. ELIGARD [Suspect]
     Active Substance: LEUPROLIDE ACETATE
     Dosage: 7.5 MILLIGRAM, MONTHLY (1 EVERY 1 MONTH)
  89. ELIGARD [Suspect]
     Active Substance: LEUPROLIDE ACETATE
     Indication: Precocious puberty
  90. ELIGARD [Suspect]
     Active Substance: LEUPROLIDE ACETATE
     Route: 058
  91. ELIGARD [Suspect]
     Active Substance: LEUPROLIDE ACETATE
     Route: 058
  92. ELIGARD [Suspect]
     Active Substance: LEUPROLIDE ACETATE
  93. ACETAMINOPHEN\METHOCARBAMOL [Suspect]
     Active Substance: ACETAMINOPHEN\METHOCARBAMOL
     Indication: Back pain
     Dosage: 400 MILLIGRAM, BID (2 EVERY 1 DAY)
  94. ACETAMINOPHEN\METHOCARBAMOL [Suspect]
     Active Substance: ACETAMINOPHEN\METHOCARBAMOL
     Dosage: 400 MILLIGRAM, BID (2 EVERY 1 DAY)
     Route: 048
  95. ACETAMINOPHEN\METHOCARBAMOL [Suspect]
     Active Substance: ACETAMINOPHEN\METHOCARBAMOL
     Dosage: 400 MILLIGRAM, BID (2 EVERY 1 DAY)
     Route: 048
  96. ACETAMINOPHEN\METHOCARBAMOL [Suspect]
     Active Substance: ACETAMINOPHEN\METHOCARBAMOL
     Dosage: 400 MILLIGRAM, BID (2 EVERY 1 DAY)
  97. FISH OIL [Suspect]
     Active Substance: FISH OIL
     Indication: Product used for unknown indication
     Dosage: 200 MILLIGRAM, QD (1 EVERY 1 DAYS)
  98. FISH OIL [Suspect]
     Active Substance: FISH OIL
     Dosage: 200 MILLIGRAM, QD (1 EVERY 1 DAYS)
     Route: 048
  99. FISH OIL [Suspect]
     Active Substance: FISH OIL
     Dosage: 200 MILLIGRAM, QD (1 EVERY 1 DAYS)
     Route: 048
  100. FISH OIL [Suspect]
     Active Substance: FISH OIL
     Dosage: 200 MILLIGRAM, QD (1 EVERY 1 DAYS)
  101. FLUOXETINE HYDROCHLORIDE [Suspect]
     Active Substance: FLUOXETINE HYDROCHLORIDE
     Indication: Product used for unknown indication
     Dosage: 20 MILLIGRAM, QD (1 EVERY 1 DAYS)
  102. FLUOXETINE HYDROCHLORIDE [Suspect]
     Active Substance: FLUOXETINE HYDROCHLORIDE
     Dosage: 20 MILLIGRAM, QD (1 EVERY 1 DAYS)
     Route: 048
  103. FLUOXETINE HYDROCHLORIDE [Suspect]
     Active Substance: FLUOXETINE HYDROCHLORIDE
     Dosage: 20 MILLIGRAM, QD (1 EVERY 1 DAYS)
     Route: 048
  104. FLUOXETINE HYDROCHLORIDE [Suspect]
     Active Substance: FLUOXETINE HYDROCHLORIDE
     Dosage: 20 MILLIGRAM, QD (1 EVERY 1 DAYS)
  105. FLUTICASONE [Suspect]
     Active Substance: FLUTICASONE
     Indication: Product used for unknown indication
     Dosage: 250 MICROGRAM, QD (1 EVERY 1 DAY)
  106. FLUTICASONE [Suspect]
     Active Substance: FLUTICASONE
     Dosage: 250 MICROGRAM, QD (1 EVERY 1 DAY)
  107. FLUTICASONE [Suspect]
     Active Substance: FLUTICASONE
     Dosage: 250 MICROGRAM, QD (1 EVERY 1 DAY)
     Route: 065
  108. FLUTICASONE [Suspect]
     Active Substance: FLUTICASONE
     Dosage: 250 MICROGRAM, QD (1 EVERY 1 DAY)
     Route: 065
  109. FLUTICASONE [Suspect]
     Active Substance: FLUTICASONE
     Dosage: 1 DOSAGE FORM, QD (1 EVERY 1 DAYS)
     Route: 065
  110. FLUTICASONE [Suspect]
     Active Substance: FLUTICASONE
     Dosage: 1 DOSAGE FORM, QD (1 EVERY 1 DAYS)
  111. FLUTICASONE [Suspect]
     Active Substance: FLUTICASONE
     Dosage: 1 DOSAGE FORM, QD (1 EVERY 1 DAYS)
  112. FLUTICASONE [Suspect]
     Active Substance: FLUTICASONE
     Dosage: 1 DOSAGE FORM, QD (1 EVERY 1 DAYS)
     Route: 065
  113. FLUTICASONE [Suspect]
     Active Substance: FLUTICASONE
     Dosage: 2 DOSAGE FORM, QD (1 EVERY 1 DAYS)
     Route: 065
  114. FLUTICASONE [Suspect]
     Active Substance: FLUTICASONE
     Dosage: 2 DOSAGE FORM, QD (1 EVERY 1 DAYS)
     Route: 065
  115. FLUTICASONE [Suspect]
     Active Substance: FLUTICASONE
     Dosage: 2 DOSAGE FORM, QD (1 EVERY 1 DAYS)
  116. FLUTICASONE [Suspect]
     Active Substance: FLUTICASONE
     Dosage: 2 DOSAGE FORM, QD (1 EVERY 1 DAYS)
  117. FLUTICASONE [Suspect]
     Active Substance: FLUTICASONE
     Dosage: 250 MICROGRAM, QD (1 EVERY 1 DAY)
  118. FLUTICASONE [Suspect]
     Active Substance: FLUTICASONE
     Dosage: 250 MICROGRAM, QD (1 EVERY 1 DAY)
  119. FLUTICASONE [Suspect]
     Active Substance: FLUTICASONE
     Dosage: 250 MICROGRAM, QD (1 EVERY 1 DAY)
     Route: 048
  120. FLUTICASONE [Suspect]
     Active Substance: FLUTICASONE
     Dosage: 250 MICROGRAM, QD (1 EVERY 1 DAY)
     Route: 048
  121. FLUTICASONE [Suspect]
     Active Substance: FLUTICASONE
     Dosage: UNK, QD (1 EVERY 1 DAYS)
  122. FLUTICASONE [Suspect]
     Active Substance: FLUTICASONE
     Dosage: UNK, QD (1 EVERY 1 DAYS)
  123. FLUTICASONE [Suspect]
     Active Substance: FLUTICASONE
     Dosage: UNK, QD (1 EVERY 1 DAYS)
     Route: 065
  124. FLUTICASONE [Suspect]
     Active Substance: FLUTICASONE
     Dosage: UNK, QD (1 EVERY 1 DAYS)
     Route: 065
  125. HYDROMORPHONE [Suspect]
     Active Substance: HYDROMORPHONE
     Indication: Pain management
  126. HYDROMORPHONE [Suspect]
     Active Substance: HYDROMORPHONE
     Indication: Back pain
     Route: 065
  127. HYDROMORPHONE [Suspect]
     Active Substance: HYDROMORPHONE
     Route: 065
  128. HYDROMORPHONE [Suspect]
     Active Substance: HYDROMORPHONE
  129. HYDROMORPHONE HYDROCHLORIDE [Suspect]
     Active Substance: HYDROMORPHONE HYDROCHLORIDE
     Indication: Pain management
  130. HYDROMORPHONE HYDROCHLORIDE [Suspect]
     Active Substance: HYDROMORPHONE HYDROCHLORIDE
     Indication: Back pain
  131. HYDROMORPHONE HYDROCHLORIDE [Suspect]
     Active Substance: HYDROMORPHONE HYDROCHLORIDE
     Route: 060
  132. HYDROMORPHONE HYDROCHLORIDE [Suspect]
     Active Substance: HYDROMORPHONE HYDROCHLORIDE
     Route: 060
  133. HYDROMORPHONE HYDROCHLORIDE [Suspect]
     Active Substance: HYDROMORPHONE HYDROCHLORIDE
  134. HYDROMORPHONE HYDROCHLORIDE [Suspect]
     Active Substance: HYDROMORPHONE HYDROCHLORIDE
  135. HYDROMORPHONE HYDROCHLORIDE [Suspect]
     Active Substance: HYDROMORPHONE HYDROCHLORIDE
     Route: 065
  136. HYDROMORPHONE HYDROCHLORIDE [Suspect]
     Active Substance: HYDROMORPHONE HYDROCHLORIDE
     Route: 065
  137. HYDROXYCHLOROQUINE [Suspect]
     Active Substance: HYDROXYCHLOROQUINE
     Indication: Child abuse
     Dosage: 400 MILLIGRAM, QD (1 EVERY 1 DAYS)
  138. HYDROXYCHLOROQUINE [Suspect]
     Active Substance: HYDROXYCHLOROQUINE
     Dosage: 400 MILLIGRAM, QD (1 EVERY 1 DAYS)
     Route: 048
  139. HYDROXYCHLOROQUINE [Suspect]
     Active Substance: HYDROXYCHLOROQUINE
     Dosage: 400 MILLIGRAM, QD (1 EVERY 1 DAYS)
     Route: 048
  140. HYDROXYCHLOROQUINE [Suspect]
     Active Substance: HYDROXYCHLOROQUINE
     Dosage: 400 MILLIGRAM, QD (1 EVERY 1 DAYS)
  141. KETOROLAC [Suspect]
     Active Substance: KETOROLAC TROMETHAMINE
     Indication: Pain
  142. KETOROLAC [Suspect]
     Active Substance: KETOROLAC TROMETHAMINE
  143. KETOROLAC [Suspect]
     Active Substance: KETOROLAC TROMETHAMINE
     Route: 065
  144. KETOROLAC [Suspect]
     Active Substance: KETOROLAC TROMETHAMINE
     Route: 065
  145. KETOROLAC [Suspect]
     Active Substance: KETOROLAC TROMETHAMINE
     Dosage: 20 MILLIGRAM, QID (4 EVERY 1 DAYS)
  146. KETOROLAC [Suspect]
     Active Substance: KETOROLAC TROMETHAMINE
     Dosage: 20 MILLIGRAM, QID (4 EVERY 1 DAYS)
  147. KETOROLAC [Suspect]
     Active Substance: KETOROLAC TROMETHAMINE
     Dosage: 20 MILLIGRAM, QID (4 EVERY 1 DAYS)
     Route: 048
  148. KETOROLAC [Suspect]
     Active Substance: KETOROLAC TROMETHAMINE
     Dosage: 20 MILLIGRAM, QID (4 EVERY 1 DAYS)
     Route: 048
  149. LEUPROLIDE ACETATE [Suspect]
     Active Substance: LEUPROLIDE ACETATE
     Indication: Product used for unknown indication
     Dosage: 7.5 MILLIGRAM, MONTHLY (1 EVERY 1 MONTH)
  150. LEUPROLIDE ACETATE [Suspect]
     Active Substance: LEUPROLIDE ACETATE
     Dosage: 7.5 MILLIGRAM, MONTHLY (1 EVERY 1 MONTH)
     Route: 030
  151. LEUPROLIDE ACETATE [Suspect]
     Active Substance: LEUPROLIDE ACETATE
     Dosage: 7.5 MILLIGRAM, MONTHLY (1 EVERY 1 MONTH)
     Route: 030
  152. LEUPROLIDE ACETATE [Suspect]
     Active Substance: LEUPROLIDE ACETATE
     Dosage: 7.5 MILLIGRAM, MONTHLY (1 EVERY 1 MONTH)
  153. LORAZEPAM [Suspect]
     Active Substance: LORAZEPAM
     Indication: Seizure
     Route: 060
  154. LORAZEPAM [Suspect]
     Active Substance: LORAZEPAM
     Indication: Pain management
  155. LORAZEPAM [Suspect]
     Active Substance: LORAZEPAM
     Indication: Muscle spasms
  156. LORAZEPAM [Suspect]
     Active Substance: LORAZEPAM
     Indication: Back pain
     Route: 060
  157. LORAZEPAM [Suspect]
     Active Substance: LORAZEPAM
     Route: 060
  158. LORAZEPAM [Suspect]
     Active Substance: LORAZEPAM
  159. LORAZEPAM [Suspect]
     Active Substance: LORAZEPAM
  160. LORAZEPAM [Suspect]
     Active Substance: LORAZEPAM
     Route: 060
  161. LORAZEPAM [Suspect]
     Active Substance: LORAZEPAM
  162. LORAZEPAM [Suspect]
     Active Substance: LORAZEPAM
  163. LORAZEPAM [Suspect]
     Active Substance: LORAZEPAM
     Route: 065
  164. LORAZEPAM [Suspect]
     Active Substance: LORAZEPAM
     Route: 065
  165. LORAZEPAM [Suspect]
     Active Substance: LORAZEPAM
     Dosage: 7.5 MILLIGRAM, MONTHLY (1 EVERY 1 MONTH)
  166. LORAZEPAM [Suspect]
     Active Substance: LORAZEPAM
     Dosage: 7.5 MILLIGRAM, MONTHLY (1 EVERY 1 MONTH)
  167. LORAZEPAM [Suspect]
     Active Substance: LORAZEPAM
     Dosage: 7.5 MILLIGRAM, MONTHLY (1 EVERY 1 MONTH)
     Route: 060
  168. LORAZEPAM [Suspect]
     Active Substance: LORAZEPAM
     Dosage: 7.5 MILLIGRAM, MONTHLY (1 EVERY 1 MONTH)
     Route: 060
  169. POLYETHYLENE GLYCOLS [Suspect]
     Active Substance: POLYETHYLENE GLYCOLS
     Indication: Product used for unknown indication
     Dosage: 30 MILLIGRAM, BID (2 EVERY 1 DAY)
  170. POLYETHYLENE GLYCOLS [Suspect]
     Active Substance: POLYETHYLENE GLYCOLS
     Dosage: 30 MILLIGRAM, BID (2 EVERY 1 DAY)
     Route: 048
  171. POLYETHYLENE GLYCOLS [Suspect]
     Active Substance: POLYETHYLENE GLYCOLS
     Dosage: 30 MILLIGRAM, BID (2 EVERY 1 DAY)
     Route: 048
  172. POLYETHYLENE GLYCOLS [Suspect]
     Active Substance: POLYETHYLENE GLYCOLS
     Dosage: 30 MILLIGRAM, BID (2 EVERY 1 DAY)
  173. POLYETHYLENE GLYCOL 3350\POTASSIUM CHLORIDE\SODIUM BICARBONATE\SODIUM [Suspect]
     Active Substance: POLYETHYLENE GLYCOL 3350\POTASSIUM CHLORIDE\SODIUM BICARBONATE\SODIUM CHLORIDE
     Indication: Product used for unknown indication
     Dosage: 30 MILLIGRAM, BID (2 EVERY 1 DAY)
  174. POLYETHYLENE GLYCOL 3350\POTASSIUM CHLORIDE\SODIUM BICARBONATE\SODIUM [Suspect]
     Active Substance: POLYETHYLENE GLYCOL 3350\POTASSIUM CHLORIDE\SODIUM BICARBONATE\SODIUM CHLORIDE
     Dosage: 30 MILLIGRAM, BID (2 EVERY 1 DAY)
     Route: 048
  175. POLYETHYLENE GLYCOL 3350\POTASSIUM CHLORIDE\SODIUM BICARBONATE\SODIUM [Suspect]
     Active Substance: POLYETHYLENE GLYCOL 3350\POTASSIUM CHLORIDE\SODIUM BICARBONATE\SODIUM CHLORIDE
     Dosage: 30 MILLIGRAM, BID (2 EVERY 1 DAY)
     Route: 048
  176. POLYETHYLENE GLYCOL 3350\POTASSIUM CHLORIDE\SODIUM BICARBONATE\SODIUM [Suspect]
     Active Substance: POLYETHYLENE GLYCOL 3350\POTASSIUM CHLORIDE\SODIUM BICARBONATE\SODIUM CHLORIDE
     Dosage: 30 MILLIGRAM, BID (2 EVERY 1 DAY)
  177. MELATONIN [Suspect]
     Active Substance: MELATONIN
     Indication: Sleep disorder
     Dosage: 10 MILLIGRAM, QD (1 EVERY 1 DAYS)
  178. MELATONIN [Suspect]
     Active Substance: MELATONIN
     Indication: Sleep deficit
     Dosage: 10 MILLIGRAM, QD (1 EVERY 1 DAYS)
  179. MELATONIN [Suspect]
     Active Substance: MELATONIN
     Indication: Child abuse
     Dosage: 10 MILLIGRAM, QD (1 EVERY 1 DAYS)
     Route: 048
  180. MELATONIN [Suspect]
     Active Substance: MELATONIN
     Dosage: 10 MILLIGRAM, QD (1 EVERY 1 DAYS)
     Route: 048
  181. MELATONIN [Suspect]
     Active Substance: MELATONIN
  182. MELATONIN [Suspect]
     Active Substance: MELATONIN
  183. MELATONIN [Suspect]
     Active Substance: MELATONIN
     Route: 048
  184. MELATONIN [Suspect]
     Active Substance: MELATONIN
     Route: 048
  185. METHADONE [Suspect]
     Active Substance: METHADONE HYDROCHLORIDE
     Indication: Sleep disorder
     Dosage: 0.375 MILLIGRAM, QD (1 EVERY 1 DAY)
  186. METHADONE [Suspect]
     Active Substance: METHADONE HYDROCHLORIDE
     Indication: Child abuse
     Dosage: 0.375 MILLIGRAM, QD (1 EVERY 1 DAY)
  187. METHADONE [Suspect]
     Active Substance: METHADONE HYDROCHLORIDE
     Indication: Back pain
     Dosage: 0.375 MILLIGRAM, QD (1 EVERY 1 DAY)
     Route: 048
  188. METHADONE [Suspect]
     Active Substance: METHADONE HYDROCHLORIDE
     Dosage: 0.375 MILLIGRAM, QD (1 EVERY 1 DAY)
     Route: 048
  189. METHADONE [Suspect]
     Active Substance: METHADONE HYDROCHLORIDE
     Dosage: 2 MILLIGRAM, TID (3 EVERY 1 DAY)
  190. METHADONE [Suspect]
     Active Substance: METHADONE HYDROCHLORIDE
     Dosage: 2 MILLIGRAM, TID (3 EVERY 1 DAY)
  191. METHADONE [Suspect]
     Active Substance: METHADONE HYDROCHLORIDE
     Dosage: 2 MILLIGRAM, TID (3 EVERY 1 DAY)
     Route: 048
  192. METHADONE [Suspect]
     Active Substance: METHADONE HYDROCHLORIDE
     Dosage: 2 MILLIGRAM, TID (3 EVERY 1 DAY)
     Route: 048
  193. METHADONE [Suspect]
     Active Substance: METHADONE HYDROCHLORIDE
     Dosage: 10 MILLIGRAM, QD (1 EVERY 1 DAYS)
  194. METHADONE [Suspect]
     Active Substance: METHADONE HYDROCHLORIDE
     Dosage: 10 MILLIGRAM, QD (1 EVERY 1 DAYS)
     Route: 048
  195. METHADONE [Suspect]
     Active Substance: METHADONE HYDROCHLORIDE
     Dosage: 10 MILLIGRAM, QD (1 EVERY 1 DAYS)
  196. METHADONE [Suspect]
     Active Substance: METHADONE HYDROCHLORIDE
     Dosage: 10 MILLIGRAM, QD (1 EVERY 1 DAYS)
     Route: 048
  197. METHOCARBAMOL [Suspect]
     Active Substance: METHOCARBAMOL
     Indication: Child abuse
     Dosage: UNK, BID (2 EVERY 1 DAYS)
  198. METHOCARBAMOL [Suspect]
     Active Substance: METHOCARBAMOL
     Indication: Back pain
     Dosage: UNK, BID (2 EVERY 1 DAYS)
  199. METHOCARBAMOL [Suspect]
     Active Substance: METHOCARBAMOL
     Dosage: UNK, BID (2 EVERY 1 DAYS)
     Route: 065
  200. METHOCARBAMOL [Suspect]
     Active Substance: METHOCARBAMOL
     Dosage: UNK, BID (2 EVERY 1 DAYS)
     Route: 065
  201. METHOCARBAMOL [Suspect]
     Active Substance: METHOCARBAMOL
     Dosage: 400 MILLIGRAM, BID (2 EVERY 1 DAY)
     Route: 048
  202. METHOCARBAMOL [Suspect]
     Active Substance: METHOCARBAMOL
     Dosage: 400 MILLIGRAM, BID (2 EVERY 1 DAY)
     Route: 048
  203. METHOCARBAMOL [Suspect]
     Active Substance: METHOCARBAMOL
     Dosage: 400 MILLIGRAM, BID (2 EVERY 1 DAY)
  204. METHOCARBAMOL [Suspect]
     Active Substance: METHOCARBAMOL
     Dosage: 400 MILLIGRAM, BID (2 EVERY 1 DAY)
  205. METHOCARBAMOL [Suspect]
     Active Substance: METHOCARBAMOL
     Route: 048
  206. METHOCARBAMOL [Suspect]
     Active Substance: METHOCARBAMOL
     Route: 048
  207. METHOCARBAMOL [Suspect]
     Active Substance: METHOCARBAMOL
  208. METHOCARBAMOL [Suspect]
     Active Substance: METHOCARBAMOL
  209. METHOCARBAMOL [Suspect]
     Active Substance: METHOCARBAMOL
  210. METHOCARBAMOL [Suspect]
     Active Substance: METHOCARBAMOL
  211. METHOCARBAMOL [Suspect]
     Active Substance: METHOCARBAMOL
     Route: 065
  212. METHOCARBAMOL [Suspect]
     Active Substance: METHOCARBAMOL
     Route: 065
  213. MONTELUKAST [Suspect]
     Active Substance: MONTELUKAST
     Indication: Product used for unknown indication
     Dosage: 10 MILLIGRAM, QD (1 EVERY 1 DAYS)
  214. MONTELUKAST [Suspect]
     Active Substance: MONTELUKAST
     Dosage: 10 MILLIGRAM, QD (1 EVERY 1 DAYS)
     Route: 048
  215. MONTELUKAST [Suspect]
     Active Substance: MONTELUKAST
     Dosage: 10 MILLIGRAM, QD (1 EVERY 1 DAYS)
     Route: 048
  216. MONTELUKAST [Suspect]
     Active Substance: MONTELUKAST
     Dosage: 10 MILLIGRAM, QD (1 EVERY 1 DAYS)
  217. OMEGA 3 [Suspect]
     Active Substance: CAPSAICIN
     Indication: Product used for unknown indication
     Dosage: 400 MILLIGRAM, QD (1 EVERY 1 DAYS)
  218. OMEGA 3 [Suspect]
     Active Substance: CAPSAICIN
     Dosage: 400 MILLIGRAM, QD (1 EVERY 1 DAYS)
     Route: 048
  219. OMEGA 3 [Suspect]
     Active Substance: CAPSAICIN
     Dosage: 400 MILLIGRAM, QD (1 EVERY 1 DAYS)
     Route: 048
  220. OMEGA 3 [Suspect]
     Active Substance: CAPSAICIN
     Dosage: 400 MILLIGRAM, QD (1 EVERY 1 DAYS)
  221. FISH OIL\OMEGA-3 FATTY ACIDS [Suspect]
     Active Substance: FISH OIL\OMEGA-3 FATTY ACIDS
     Indication: Product used for unknown indication
  222. FISH OIL\OMEGA-3 FATTY ACIDS [Suspect]
     Active Substance: FISH OIL\OMEGA-3 FATTY ACIDS
  223. FISH OIL\OMEGA-3 FATTY ACIDS [Suspect]
     Active Substance: FISH OIL\OMEGA-3 FATTY ACIDS
     Route: 065
  224. FISH OIL\OMEGA-3 FATTY ACIDS [Suspect]
     Active Substance: FISH OIL\OMEGA-3 FATTY ACIDS
     Route: 065
  225. FISH OIL\OMEGA-3 FATTY ACIDS [Suspect]
     Active Substance: FISH OIL\OMEGA-3 FATTY ACIDS
     Dosage: 200 MILLIGRAM, QD (1 EVERY 1 DAYS)
  226. FISH OIL\OMEGA-3 FATTY ACIDS [Suspect]
     Active Substance: FISH OIL\OMEGA-3 FATTY ACIDS
     Dosage: 200 MILLIGRAM, QD (1 EVERY 1 DAYS)
  227. FISH OIL\OMEGA-3 FATTY ACIDS [Suspect]
     Active Substance: FISH OIL\OMEGA-3 FATTY ACIDS
     Dosage: 200 MILLIGRAM, QD (1 EVERY 1 DAYS)
     Route: 048
  228. FISH OIL\OMEGA-3 FATTY ACIDS [Suspect]
     Active Substance: FISH OIL\OMEGA-3 FATTY ACIDS
     Dosage: 200 MILLIGRAM, QD (1 EVERY 1 DAYS)
     Route: 048
  229. FISH OIL\OMEGA-3 FATTY ACIDS [Suspect]
     Active Substance: FISH OIL\OMEGA-3 FATTY ACIDS
     Dosage: 400 MILLIGRAM, QD (1 EVERY 1 DAYS)
  230. FISH OIL\OMEGA-3 FATTY ACIDS [Suspect]
     Active Substance: FISH OIL\OMEGA-3 FATTY ACIDS
     Dosage: 400 MILLIGRAM, QD (1 EVERY 1 DAYS)
  231. FISH OIL\OMEGA-3 FATTY ACIDS [Suspect]
     Active Substance: FISH OIL\OMEGA-3 FATTY ACIDS
     Dosage: 400 MILLIGRAM, QD (1 EVERY 1 DAYS)
     Route: 048
  232. FISH OIL\OMEGA-3 FATTY ACIDS [Suspect]
     Active Substance: FISH OIL\OMEGA-3 FATTY ACIDS
     Dosage: 400 MILLIGRAM, QD (1 EVERY 1 DAYS)
     Route: 048
  233. FISH OIL\OMEGA-3 FATTY ACIDS [Suspect]
     Active Substance: FISH OIL\OMEGA-3 FATTY ACIDS
     Dosage: 200 MILLIGRAM, QD (1 EVERY 1 DAYS)
  234. FISH OIL\OMEGA-3 FATTY ACIDS [Suspect]
     Active Substance: FISH OIL\OMEGA-3 FATTY ACIDS
     Dosage: 200 MILLIGRAM, QD (1 EVERY 1 DAYS)
  235. FISH OIL\OMEGA-3 FATTY ACIDS [Suspect]
     Active Substance: FISH OIL\OMEGA-3 FATTY ACIDS
     Dosage: 200 MILLIGRAM, QD (1 EVERY 1 DAYS)
     Route: 065
  236. FISH OIL\OMEGA-3 FATTY ACIDS [Suspect]
     Active Substance: FISH OIL\OMEGA-3 FATTY ACIDS
     Dosage: 200 MILLIGRAM, QD (1 EVERY 1 DAYS)
     Route: 065
  237. FISH OIL\OMEGA-3 FATTY ACIDS [Suspect]
     Active Substance: FISH OIL\OMEGA-3 FATTY ACIDS
     Dosage: 400 MILLIGRAM, QD (1 EVERY 1 DAYS)
  238. FISH OIL\OMEGA-3 FATTY ACIDS [Suspect]
     Active Substance: FISH OIL\OMEGA-3 FATTY ACIDS
     Dosage: 400 MILLIGRAM, QD (1 EVERY 1 DAYS)
     Route: 065
  239. FISH OIL\OMEGA-3 FATTY ACIDS [Suspect]
     Active Substance: FISH OIL\OMEGA-3 FATTY ACIDS
     Dosage: 400 MILLIGRAM, QD (1 EVERY 1 DAYS)
  240. FISH OIL\OMEGA-3 FATTY ACIDS [Suspect]
     Active Substance: FISH OIL\OMEGA-3 FATTY ACIDS
     Dosage: 400 MILLIGRAM, QD (1 EVERY 1 DAYS)
     Route: 065
  241. PANTOPRAZOLE [Suspect]
     Active Substance: PANTOPRAZOLE
     Indication: Product used for unknown indication
     Dosage: 40 MILLIGRAM, QD (1 EVERY 1 DAYS)
  242. PANTOPRAZOLE [Suspect]
     Active Substance: PANTOPRAZOLE
     Dosage: 40 MILLIGRAM, QD (1 EVERY 1 DAYS)
     Route: 048
  243. PANTOPRAZOLE [Suspect]
     Active Substance: PANTOPRAZOLE
     Dosage: 40 MILLIGRAM, QD (1 EVERY 1 DAYS)
     Route: 048
  244. PANTOPRAZOLE [Suspect]
     Active Substance: PANTOPRAZOLE
     Dosage: 40 MILLIGRAM, QD (1 EVERY 1 DAYS)
  245. PHENOBARBITAL [Suspect]
     Active Substance: PHENOBARBITAL
     Indication: Product used for unknown indication
     Dosage: 30 MILLIGRAM, BID (2 EVERY 1 DAY)
  246. PHENOBARBITAL [Suspect]
     Active Substance: PHENOBARBITAL
     Dosage: 30 MILLIGRAM, BID (2 EVERY 1 DAY)
     Route: 048
  247. PHENOBARBITAL [Suspect]
     Active Substance: PHENOBARBITAL
     Dosage: 30 MILLIGRAM, BID (2 EVERY 1 DAY)
     Route: 048
  248. PHENOBARBITAL [Suspect]
     Active Substance: PHENOBARBITAL
     Dosage: 30 MILLIGRAM, BID (2 EVERY 1 DAY)
  249. HIGH DENSITY POLYETHYLENE [Suspect]
     Active Substance: HIGH DENSITY POLYETHYLENE
     Indication: Product used for unknown indication
     Dosage: 30 MILLIGRAM, BID (2 EVERY 1 DAY)
  250. HIGH DENSITY POLYETHYLENE [Suspect]
     Active Substance: HIGH DENSITY POLYETHYLENE
     Dosage: 30 MILLIGRAM, BID (2 EVERY 1 DAY)
     Route: 048
  251. HIGH DENSITY POLYETHYLENE [Suspect]
     Active Substance: HIGH DENSITY POLYETHYLENE
     Dosage: 30 MILLIGRAM, BID (2 EVERY 1 DAY)
     Route: 048
  252. HIGH DENSITY POLYETHYLENE [Suspect]
     Active Substance: HIGH DENSITY POLYETHYLENE
     Dosage: 30 MILLIGRAM, BID (2 EVERY 1 DAY)
  253. RANITIDINE [Suspect]
     Active Substance: RANITIDINE
     Indication: Product used for unknown indication
     Dosage: 150 MILLIGRAM, QD (1 EVERY 1 DAYS)
  254. RANITIDINE [Suspect]
     Active Substance: RANITIDINE
     Dosage: 150 MILLIGRAM, QD (1 EVERY 1 DAYS)
     Route: 048
  255. RANITIDINE [Suspect]
     Active Substance: RANITIDINE
     Dosage: 150 MILLIGRAM, QD (1 EVERY 1 DAYS)
     Route: 048
  256. RANITIDINE [Suspect]
     Active Substance: RANITIDINE
     Dosage: 150 MILLIGRAM, QD (1 EVERY 1 DAYS)
  257. ACETAMINOPHEN\METHOCARBAMOL [Suspect]
     Active Substance: ACETAMINOPHEN\METHOCARBAMOL
     Indication: Back pain
     Dosage: 900 MILLIGRAM, QD (1 EVERY 1 DAY)
  258. ACETAMINOPHEN\METHOCARBAMOL [Suspect]
     Active Substance: ACETAMINOPHEN\METHOCARBAMOL
     Dosage: 900 MILLIGRAM, QD (1 EVERY 1 DAY)
  259. ACETAMINOPHEN\METHOCARBAMOL [Suspect]
     Active Substance: ACETAMINOPHEN\METHOCARBAMOL
     Dosage: 900 MILLIGRAM, QD (1 EVERY 1 DAY)
     Route: 048
  260. ACETAMINOPHEN\METHOCARBAMOL [Suspect]
     Active Substance: ACETAMINOPHEN\METHOCARBAMOL
     Dosage: 900 MILLIGRAM, QD (1 EVERY 1 DAY)
     Route: 048
  261. ACETAMINOPHEN\METHOCARBAMOL [Suspect]
     Active Substance: ACETAMINOPHEN\METHOCARBAMOL
     Dosage: 400 MILLIGRAM, BID (2 EVERY 1 DAY)
  262. ACETAMINOPHEN\METHOCARBAMOL [Suspect]
     Active Substance: ACETAMINOPHEN\METHOCARBAMOL
     Dosage: 400 MILLIGRAM, BID (2 EVERY 1 DAY)
  263. ACETAMINOPHEN\METHOCARBAMOL [Suspect]
     Active Substance: ACETAMINOPHEN\METHOCARBAMOL
     Dosage: 400 MILLIGRAM, BID (2 EVERY 1 DAY)
     Route: 048
  264. ACETAMINOPHEN\METHOCARBAMOL [Suspect]
     Active Substance: ACETAMINOPHEN\METHOCARBAMOL
     Dosage: 400 MILLIGRAM, BID (2 EVERY 1 DAY)
     Route: 048
  265. ASPIRIN\METHOCARBAMOL [Suspect]
     Active Substance: ASPIRIN\METHOCARBAMOL
     Indication: Product used for unknown indication
     Dosage: 400 MILLIGRAM, BID (2 EVERY 1 DAY)
  266. ASPIRIN\METHOCARBAMOL [Suspect]
     Active Substance: ASPIRIN\METHOCARBAMOL
     Dosage: 400 MILLIGRAM, BID (2 EVERY 1 DAY)
     Route: 048
  267. ASPIRIN\METHOCARBAMOL [Suspect]
     Active Substance: ASPIRIN\METHOCARBAMOL
     Dosage: 400 MILLIGRAM, BID (2 EVERY 1 DAY)
     Route: 048
  268. ASPIRIN\METHOCARBAMOL [Suspect]
     Active Substance: ASPIRIN\METHOCARBAMOL
     Dosage: 400 MILLIGRAM, BID (2 EVERY 1 DAY)
  269. ALBUTEROL [Suspect]
     Active Substance: ALBUTEROL
     Indication: Child abuse
     Dosage: 100 MICROGRAM, Q4H (1 EVERY 4 HOURS)
  270. ALBUTEROL [Suspect]
     Active Substance: ALBUTEROL
     Dosage: 100 MICROGRAM, Q4H (1 EVERY 4 HOURS)
  271. ALBUTEROL [Suspect]
     Active Substance: ALBUTEROL
     Dosage: 100 MICROGRAM, Q4H (1 EVERY 4 HOURS)
     Route: 065
  272. ALBUTEROL [Suspect]
     Active Substance: ALBUTEROL
     Dosage: 100 MICROGRAM, Q4H (1 EVERY 4 HOURS)
     Route: 065
  273. ALBUTEROL [Suspect]
     Active Substance: ALBUTEROL
     Route: 065
  274. ALBUTEROL [Suspect]
     Active Substance: ALBUTEROL
  275. ALBUTEROL [Suspect]
     Active Substance: ALBUTEROL
  276. ALBUTEROL [Suspect]
     Active Substance: ALBUTEROL
     Route: 065
  277. ALBUTEROL [Suspect]
     Active Substance: ALBUTEROL
  278. ALBUTEROL [Suspect]
     Active Substance: ALBUTEROL
  279. ALBUTEROL [Suspect]
     Active Substance: ALBUTEROL
     Route: 065
  280. ALBUTEROL [Suspect]
     Active Substance: ALBUTEROL
     Route: 065
  281. ALBUTEROL [Suspect]
     Active Substance: ALBUTEROL
     Dosage: 2 DOSAGE FORM, Q4H (1 EVERY 4 HOURS)
  282. ALBUTEROL [Suspect]
     Active Substance: ALBUTEROL
     Dosage: 2 DOSAGE FORM, Q4H (1 EVERY 4 HOURS)
  283. ALBUTEROL [Suspect]
     Active Substance: ALBUTEROL
     Dosage: 2 DOSAGE FORM, Q4H (1 EVERY 4 HOURS)
     Route: 065
  284. ALBUTEROL [Suspect]
     Active Substance: ALBUTEROL
     Dosage: 2 DOSAGE FORM, Q4H (1 EVERY 4 HOURS)
     Route: 065
  285. ALBUTEROL [Suspect]
     Active Substance: ALBUTEROL
     Dosage: 100 MILLIGRAM, Q4H (1 EVERY 4 HOURS)
     Route: 065
  286. ALBUTEROL [Suspect]
     Active Substance: ALBUTEROL
     Dosage: 100 MILLIGRAM, Q4H (1 EVERY 4 HOURS)
  287. ALBUTEROL [Suspect]
     Active Substance: ALBUTEROL
     Dosage: 100 MILLIGRAM, Q4H (1 EVERY 4 HOURS)
  288. ALBUTEROL [Suspect]
     Active Substance: ALBUTEROL
     Dosage: 100 MILLIGRAM, Q4H (1 EVERY 4 HOURS)
     Route: 065
  289. ALBUTEROL [Suspect]
     Active Substance: ALBUTEROL
     Dosage: 600 MILLIGRAM, QD (1 EVERY 1 DAY)
  290. ALBUTEROL [Suspect]
     Active Substance: ALBUTEROL
     Dosage: 600 MILLIGRAM, QD (1 EVERY 1 DAY)
  291. ALBUTEROL [Suspect]
     Active Substance: ALBUTEROL
     Dosage: 600 MILLIGRAM, QD (1 EVERY 1 DAY)
     Route: 065
  292. ALBUTEROL [Suspect]
     Active Substance: ALBUTEROL
     Dosage: 600 MILLIGRAM, QD (1 EVERY 1 DAY)
     Route: 065
  293. ALBUTEROL [Suspect]
     Active Substance: ALBUTEROL
  294. ALBUTEROL [Suspect]
     Active Substance: ALBUTEROL
  295. ALBUTEROL [Suspect]
     Active Substance: ALBUTEROL
     Route: 065
  296. ALBUTEROL [Suspect]
     Active Substance: ALBUTEROL
     Route: 065
  297. ALBUTEROL [Suspect]
     Active Substance: ALBUTEROL
     Dosage: 150 MILLIGRAM, Q4H (1 EVERY 4 HOURS)
  298. ALBUTEROL [Suspect]
     Active Substance: ALBUTEROL
     Dosage: 150 MILLIGRAM, Q4H (1 EVERY 4 HOURS)
  299. ALBUTEROL [Suspect]
     Active Substance: ALBUTEROL
     Dosage: 150 MILLIGRAM, Q4H (1 EVERY 4 HOURS)
     Route: 065
  300. ALBUTEROL [Suspect]
     Active Substance: ALBUTEROL
     Dosage: 150 MILLIGRAM, Q4H (1 EVERY 4 HOURS)
     Route: 065
  301. ALBUTEROL [Suspect]
     Active Substance: ALBUTEROL
     Dosage: 1 DOSAGE FORM, Q4H (1 EVERY 4 HOURS)
  302. ALBUTEROL [Suspect]
     Active Substance: ALBUTEROL
     Dosage: 1 DOSAGE FORM, Q4H (1 EVERY 4 HOURS)
  303. ALBUTEROL [Suspect]
     Active Substance: ALBUTEROL
     Dosage: 1 DOSAGE FORM, Q4H (1 EVERY 4 HOURS)
     Route: 065
  304. ALBUTEROL [Suspect]
     Active Substance: ALBUTEROL
     Dosage: 1 DOSAGE FORM, Q4H (1 EVERY 4 HOURS)
     Route: 065
  305. ALBUTEROL [Suspect]
     Active Substance: ALBUTEROL
  306. ALBUTEROL [Suspect]
     Active Substance: ALBUTEROL
     Route: 065
  307. ALBUTEROL [Suspect]
     Active Substance: ALBUTEROL
  308. ALBUTEROL [Suspect]
     Active Substance: ALBUTEROL
     Route: 065
  309. VITAMIN C [Suspect]
     Active Substance: ASCORBIC ACID
     Indication: Child abuse
     Dosage: 1500 MILLIGRAM, QD (1 EVERY 1 DAY)
  310. VITAMIN C [Suspect]
     Active Substance: ASCORBIC ACID
     Dosage: 1500 MILLIGRAM, QD (1 EVERY 1 DAY)
     Route: 048
  311. VITAMIN C [Suspect]
     Active Substance: ASCORBIC ACID
     Dosage: 1500 MILLIGRAM, QD (1 EVERY 1 DAY)
     Route: 048
  312. VITAMIN C [Suspect]
     Active Substance: ASCORBIC ACID
     Dosage: 1500 MILLIGRAM, QD (1 EVERY 1 DAY)
  313. LEUPROLIDE ACETATE [Suspect]
     Active Substance: LEUPROLIDE ACETATE
     Indication: Product used for unknown indication
     Dosage: 7.5 MILLIGRAM, MONTHLY (1 EVERY 1 MONTH)
  314. LEUPROLIDE ACETATE [Suspect]
     Active Substance: LEUPROLIDE ACETATE
     Dosage: 7.5 MILLIGRAM, MONTHLY (1 EVERY 1 MONTH)
  315. LEUPROLIDE ACETATE [Suspect]
     Active Substance: LEUPROLIDE ACETATE
     Dosage: 7.5 MILLIGRAM, MONTHLY (1 EVERY 1 MONTH)
     Route: 030
  316. LEUPROLIDE ACETATE [Suspect]
     Active Substance: LEUPROLIDE ACETATE
     Dosage: 7.5 MILLIGRAM, MONTHLY (1 EVERY 1 MONTH)
     Route: 030
  317. LEUPROLIDE ACETATE [Suspect]
     Active Substance: LEUPROLIDE ACETATE
     Dosage: 7.5 MILLIGRAM, QD (1 EVERY 1 DAY)
  318. LEUPROLIDE ACETATE [Suspect]
     Active Substance: LEUPROLIDE ACETATE
     Dosage: 7.5 MILLIGRAM, QD (1 EVERY 1 DAY)
  319. LEUPROLIDE ACETATE [Suspect]
     Active Substance: LEUPROLIDE ACETATE
     Dosage: 7.5 MILLIGRAM, QD (1 EVERY 1 DAY)
     Route: 030
  320. LEUPROLIDE ACETATE [Suspect]
     Active Substance: LEUPROLIDE ACETATE
     Dosage: 7.5 MILLIGRAM, QD (1 EVERY 1 DAY)
     Route: 030
  321. RANITIDINE HYDROCHLORIDE [Suspect]
     Active Substance: RANITIDINE HYDROCHLORIDE
     Indication: Product used for unknown indication
     Dosage: 150 MILLIGRAM, QD (1 EVERY 1 DAYS)
  322. RANITIDINE HYDROCHLORIDE [Suspect]
     Active Substance: RANITIDINE HYDROCHLORIDE
     Dosage: 150 MILLIGRAM, QD (1 EVERY 1 DAYS)
     Route: 048
  323. RANITIDINE HYDROCHLORIDE [Suspect]
     Active Substance: RANITIDINE HYDROCHLORIDE
     Dosage: 150 MILLIGRAM, QD (1 EVERY 1 DAYS)
     Route: 048
  324. RANITIDINE HYDROCHLORIDE [Suspect]
     Active Substance: RANITIDINE HYDROCHLORIDE
     Dosage: 150 MILLIGRAM, QD (1 EVERY 1 DAYS)
  325. ACETAMINOPHEN [Suspect]
     Active Substance: ACETAMINOPHEN
     Indication: Product used for unknown indication
     Dosage: 400 MILLIGRAM, BID (2 EVERY 1 DAY)
  326. ACETAMINOPHEN [Suspect]
     Active Substance: ACETAMINOPHEN
     Dosage: 400 MILLIGRAM, BID (2 EVERY 1 DAY)
     Route: 065
  327. ACETAMINOPHEN [Suspect]
     Active Substance: ACETAMINOPHEN
     Dosage: 400 MILLIGRAM, BID (2 EVERY 1 DAY)
     Route: 065
  328. ACETAMINOPHEN [Suspect]
     Active Substance: ACETAMINOPHEN
     Dosage: 400 MILLIGRAM, BID (2 EVERY 1 DAY)
  329. HYDROXYCHLOROQUINE SULFATE [Suspect]
     Active Substance: HYDROXYCHLOROQUINE SULFATE
     Indication: Product used for unknown indication
     Dosage: 400 MILLIGRAM, QD (1 EVERY 1 DAYS)
  330. HYDROXYCHLOROQUINE SULFATE [Suspect]
     Active Substance: HYDROXYCHLOROQUINE SULFATE
     Dosage: 400 MILLIGRAM, QD (1 EVERY 1 DAYS)
     Route: 048
  331. HYDROXYCHLOROQUINE SULFATE [Suspect]
     Active Substance: HYDROXYCHLOROQUINE SULFATE
     Dosage: 400 MILLIGRAM, QD (1 EVERY 1 DAYS)
     Route: 048
  332. HYDROXYCHLOROQUINE SULFATE [Suspect]
     Active Substance: HYDROXYCHLOROQUINE SULFATE
     Dosage: 400 MILLIGRAM, QD (1 EVERY 1 DAYS)
  333. VITAMIN D3 [Suspect]
     Active Substance: CHOLECALCIFEROL
     Indication: Product used for unknown indication
     Dosage: 2000 INTERNATIONAL UNIT, QD (1 EVERY 1 DAY)
  334. VITAMIN D3 [Suspect]
     Active Substance: CHOLECALCIFEROL
     Dosage: 2000 INTERNATIONAL UNIT, QD (1 EVERY 1 DAY)
     Route: 048
  335. VITAMIN D3 [Suspect]
     Active Substance: CHOLECALCIFEROL
     Dosage: 2000 INTERNATIONAL UNIT, QD (1 EVERY 1 DAY)
     Route: 048
  336. VITAMIN D3 [Suspect]
     Active Substance: CHOLECALCIFEROL
     Dosage: 2000 INTERNATIONAL UNIT, QD (1 EVERY 1 DAY)
  337. VITAMIN D3 [Suspect]
     Active Substance: CHOLECALCIFEROL
     Dosage: UNK, QD (1 EVERY 1 DAYS)
     Route: 048
  338. VITAMIN D3 [Suspect]
     Active Substance: CHOLECALCIFEROL
     Dosage: UNK, QD (1 EVERY 1 DAYS)
     Route: 048
  339. VITAMIN D3 [Suspect]
     Active Substance: CHOLECALCIFEROL
     Dosage: UNK, QD (1 EVERY 1 DAYS)
  340. VITAMIN D3 [Suspect]
     Active Substance: CHOLECALCIFEROL
     Dosage: UNK, QD (1 EVERY 1 DAYS)
  341. VITAMIN D3 [Suspect]
     Active Substance: CHOLECALCIFEROL
  342. VITAMIN D3 [Suspect]
     Active Substance: CHOLECALCIFEROL
     Route: 065
  343. VITAMIN D3 [Suspect]
     Active Substance: CHOLECALCIFEROL
  344. VITAMIN D3 [Suspect]
     Active Substance: CHOLECALCIFEROL
     Route: 065
  345. POLYETHYLENE GLYCOL\POTASSIUM CHLORIDE\SODIUM BICARBONATE [Concomitant]
     Active Substance: POLYETHYLENE GLYCOL\POTASSIUM CHLORIDE\SODIUM BICARBONATE
     Indication: Product used for unknown indication
  346. POLYETHYLENE GLYCOL\POTASSIUM CHLORIDE\SODIUM BICARBONATE [Concomitant]
     Active Substance: POLYETHYLENE GLYCOL\POTASSIUM CHLORIDE\SODIUM BICARBONATE
     Route: 065
  347. POLYETHYLENE GLYCOL\POTASSIUM CHLORIDE\SODIUM BICARBONATE [Concomitant]
     Active Substance: POLYETHYLENE GLYCOL\POTASSIUM CHLORIDE\SODIUM BICARBONATE
     Route: 065
  348. POLYETHYLENE GLYCOL\POTASSIUM CHLORIDE\SODIUM BICARBONATE [Concomitant]
     Active Substance: POLYETHYLENE GLYCOL\POTASSIUM CHLORIDE\SODIUM BICARBONATE
  349. DIMENHYDRINATE [Suspect]
     Active Substance: DIMENHYDRINATE
     Indication: Constipation
     Dosage: 25 MILLIGRAM, QD (1 EVERY 1 DAYS)
  350. DIMENHYDRINATE [Suspect]
     Active Substance: DIMENHYDRINATE
     Indication: Pruritus
     Dosage: 25 MILLIGRAM, QD (1 EVERY 1 DAYS)
  351. DIMENHYDRINATE [Suspect]
     Active Substance: DIMENHYDRINATE
     Dosage: 25 MILLIGRAM, QD (1 EVERY 1 DAYS)
     Route: 048
  352. DIMENHYDRINATE [Suspect]
     Active Substance: DIMENHYDRINATE
     Dosage: 25 MILLIGRAM, QD (1 EVERY 1 DAYS)
     Route: 048
  353. DIMENHYDRINATE [Suspect]
     Active Substance: DIMENHYDRINATE
     Dosage: 20 MILLIGRAM, QD (1 EVERY 1 DAYS)
  354. DIMENHYDRINATE [Suspect]
     Active Substance: DIMENHYDRINATE
     Dosage: 20 MILLIGRAM, QD (1 EVERY 1 DAYS)
  355. DIMENHYDRINATE [Suspect]
     Active Substance: DIMENHYDRINATE
     Dosage: 20 MILLIGRAM, QD (1 EVERY 1 DAYS)
     Route: 048
  356. DIMENHYDRINATE [Suspect]
     Active Substance: DIMENHYDRINATE
     Dosage: 20 MILLIGRAM, QD (1 EVERY 1 DAYS)
     Route: 048
  357. DIMENHYDRINATE [Suspect]
     Active Substance: DIMENHYDRINATE
     Dosage: 12.5 MILLIGRAM, QID (4 EVERY 1 DAYS)
  358. DIMENHYDRINATE [Suspect]
     Active Substance: DIMENHYDRINATE
     Dosage: 12.5 MILLIGRAM, QID (4 EVERY 1 DAYS)
     Route: 048
  359. DIMENHYDRINATE [Suspect]
     Active Substance: DIMENHYDRINATE
     Dosage: 12.5 MILLIGRAM, QID (4 EVERY 1 DAYS)
  360. DIMENHYDRINATE [Suspect]
     Active Substance: DIMENHYDRINATE
     Dosage: 12.5 MILLIGRAM, QID (4 EVERY 1 DAYS)
     Route: 048
  361. ELIGARD [Suspect]
     Active Substance: LEUPROLIDE ACETATE
     Indication: Product used for unknown indication
  362. ELIGARD [Suspect]
     Active Substance: LEUPROLIDE ACETATE
  363. ELIGARD [Suspect]
     Active Substance: LEUPROLIDE ACETATE
     Route: 030
  364. ELIGARD [Suspect]
     Active Substance: LEUPROLIDE ACETATE
     Route: 030
  365. ELIGARD [Suspect]
     Active Substance: LEUPROLIDE ACETATE
  366. ELIGARD [Suspect]
     Active Substance: LEUPROLIDE ACETATE
  367. ELIGARD [Suspect]
     Active Substance: LEUPROLIDE ACETATE
     Route: 058
  368. ELIGARD [Suspect]
     Active Substance: LEUPROLIDE ACETATE
     Route: 058
  369. TYLENOL [Suspect]
     Active Substance: ACETAMINOPHEN
     Indication: Back pain
     Dosage: 400 MILLIGRAM, BID (2 EVERY 1 DAY)
  370. TYLENOL [Suspect]
     Active Substance: ACETAMINOPHEN
     Dosage: 400 MILLIGRAM, BID (2 EVERY 1 DAY)
     Route: 048
  371. TYLENOL [Suspect]
     Active Substance: ACETAMINOPHEN
     Dosage: 400 MILLIGRAM, BID (2 EVERY 1 DAY)
     Route: 048
  372. TYLENOL [Suspect]
     Active Substance: ACETAMINOPHEN
     Dosage: 400 MILLIGRAM, BID (2 EVERY 1 DAY)
  373. FLUOXETINE [Suspect]
     Active Substance: FLUOXETINE HYDROCHLORIDE
     Indication: Product used for unknown indication
     Dosage: 20 MILLIGRAM, QD (1 EVERY 1 DAYS)
  374. FLUOXETINE [Suspect]
     Active Substance: FLUOXETINE HYDROCHLORIDE
     Dosage: 20 MILLIGRAM, QD (1 EVERY 1 DAYS)
     Route: 048
  375. FLUOXETINE [Suspect]
     Active Substance: FLUOXETINE HYDROCHLORIDE
     Dosage: 20 MILLIGRAM, QD (1 EVERY 1 DAYS)
     Route: 048
  376. FLUOXETINE [Suspect]
     Active Substance: FLUOXETINE HYDROCHLORIDE
     Dosage: 20 MILLIGRAM, QD (1 EVERY 1 DAYS)
  377. FLUTICASONE PROPIONATE [Suspect]
     Active Substance: FLUTICASONE PROPIONATE
     Indication: Product used for unknown indication
     Dosage: 250 MILLIGRAM, QD (1 EVERY 1 DAY)
  378. FLUTICASONE PROPIONATE [Suspect]
     Active Substance: FLUTICASONE PROPIONATE
     Dosage: 250 MILLIGRAM, QD (1 EVERY 1 DAY)
  379. FLUTICASONE PROPIONATE [Suspect]
     Active Substance: FLUTICASONE PROPIONATE
     Dosage: 250 MILLIGRAM, QD (1 EVERY 1 DAY)
     Route: 065
  380. FLUTICASONE PROPIONATE [Suspect]
     Active Substance: FLUTICASONE PROPIONATE
     Dosage: 250 MILLIGRAM, QD (1 EVERY 1 DAY)
     Route: 065
  381. FLUTICASONE PROPIONATE [Suspect]
     Active Substance: FLUTICASONE PROPIONATE
     Dosage: 2 DOSAGE FORM, QD (1 EVERY 1 DAY)
  382. FLUTICASONE PROPIONATE [Suspect]
     Active Substance: FLUTICASONE PROPIONATE
     Dosage: 2 DOSAGE FORM, QD (1 EVERY 1 DAY)
  383. FLUTICASONE PROPIONATE [Suspect]
     Active Substance: FLUTICASONE PROPIONATE
     Dosage: 2 DOSAGE FORM, QD (1 EVERY 1 DAY)
     Route: 065
  384. FLUTICASONE PROPIONATE [Suspect]
     Active Substance: FLUTICASONE PROPIONATE
     Dosage: 2 DOSAGE FORM, QD (1 EVERY 1 DAY)
     Route: 065
  385. HYDROMORPHONE [Suspect]
     Active Substance: HYDROMORPHONE
     Indication: Pain management
  386. HYDROMORPHONE [Suspect]
     Active Substance: HYDROMORPHONE
     Indication: Back pain
     Route: 065
  387. HYDROMORPHONE [Suspect]
     Active Substance: HYDROMORPHONE
     Route: 065
  388. HYDROMORPHONE [Suspect]
     Active Substance: HYDROMORPHONE
  389. LEUPROLIDE [Suspect]
     Active Substance: LEUPROLIDE
     Indication: Product used for unknown indication
  390. LEUPROLIDE [Suspect]
     Active Substance: LEUPROLIDE
     Route: 030
  391. LEUPROLIDE [Suspect]
     Active Substance: LEUPROLIDE
     Route: 030
  392. LEUPROLIDE [Suspect]
     Active Substance: LEUPROLIDE
  393. CELECOXIB [Suspect]
     Active Substance: CELECOXIB
     Indication: Pain management
  394. CELECOXIB [Suspect]
     Active Substance: CELECOXIB
     Indication: Back pain
  395. CELECOXIB [Suspect]
     Active Substance: CELECOXIB
     Route: 065
  396. CELECOXIB [Suspect]
     Active Substance: CELECOXIB
     Route: 065
  397. CELECOXIB [Suspect]
     Active Substance: CELECOXIB
     Dosage: 100 MILLIGRAM, BID (2 EVERY 1 DAYS)
  398. CELECOXIB [Suspect]
     Active Substance: CELECOXIB
     Dosage: 100 MILLIGRAM, BID (2 EVERY 1 DAYS)
  399. CELECOXIB [Suspect]
     Active Substance: CELECOXIB
     Dosage: 100 MILLIGRAM, BID (2 EVERY 1 DAYS)
     Route: 065
  400. CELECOXIB [Suspect]
     Active Substance: CELECOXIB
     Dosage: 100 MILLIGRAM, BID (2 EVERY 1 DAYS)
     Route: 065
  401. POLYETHYLENE GLYCOL 3350 [Suspect]
     Active Substance: POLYETHYLENE GLYCOL 3350
     Indication: Product used for unknown indication
     Dosage: 30 MILLIGRAM, BID (2 EVERY 1 DAY)
  402. POLYETHYLENE GLYCOL 3350 [Suspect]
     Active Substance: POLYETHYLENE GLYCOL 3350
     Dosage: 30 MILLIGRAM, BID (2 EVERY 1 DAY)
     Route: 048
  403. POLYETHYLENE GLYCOL 3350 [Suspect]
     Active Substance: POLYETHYLENE GLYCOL 3350
     Dosage: 30 MILLIGRAM, BID (2 EVERY 1 DAY)
     Route: 048
  404. POLYETHYLENE GLYCOL 3350 [Suspect]
     Active Substance: POLYETHYLENE GLYCOL 3350
     Dosage: 30 MILLIGRAM, BID (2 EVERY 1 DAY)
  405. ACETAMINOPHEN [Suspect]
     Active Substance: ACETAMINOPHEN
     Indication: Product used for unknown indication
     Dosage: UNK, BID (2 EVERY 1 DAYS)
  406. ACETAMINOPHEN [Suspect]
     Active Substance: ACETAMINOPHEN
     Dosage: UNK, BID (2 EVERY 1 DAYS)
     Route: 048
  407. ACETAMINOPHEN [Suspect]
     Active Substance: ACETAMINOPHEN
     Dosage: UNK, BID (2 EVERY 1 DAYS)
     Route: 048
  408. ACETAMINOPHEN [Suspect]
     Active Substance: ACETAMINOPHEN
     Dosage: UNK, BID (2 EVERY 1 DAYS)
  409. MONTELUKAST SODIUM [Suspect]
     Active Substance: MONTELUKAST SODIUM
     Indication: Product used for unknown indication
     Dosage: 10 MILLIGRAM, QD (1 EVERY 1 DAYS)
  410. MONTELUKAST SODIUM [Suspect]
     Active Substance: MONTELUKAST SODIUM
     Dosage: 10 MILLIGRAM, QD (1 EVERY 1 DAYS)
     Route: 048
  411. MONTELUKAST SODIUM [Suspect]
     Active Substance: MONTELUKAST SODIUM
     Dosage: 10 MILLIGRAM, QD (1 EVERY 1 DAYS)
     Route: 048
  412. MONTELUKAST SODIUM [Suspect]
     Active Substance: MONTELUKAST SODIUM
     Dosage: 10 MILLIGRAM, QD (1 EVERY 1 DAYS)
  413. OMEGA 3 [Suspect]
     Active Substance: CAPSAICIN
     Indication: Product used for unknown indication
     Dosage: 200 MILLIGRAM, QD (1 EVERY 1 DAYS)
     Route: 048
  414. OMEGA 3 [Suspect]
     Active Substance: CAPSAICIN
     Dosage: 200 MILLIGRAM, QD (1 EVERY 1 DAYS)
  415. OMEGA 3 [Suspect]
     Active Substance: CAPSAICIN
     Dosage: 200 MILLIGRAM, QD (1 EVERY 1 DAYS)
  416. OMEGA 3 [Suspect]
     Active Substance: CAPSAICIN
     Dosage: 200 MILLIGRAM, QD (1 EVERY 1 DAYS)
     Route: 048
  417. OMEGA 3 [Suspect]
     Active Substance: CAPSAICIN
     Dosage: 400 MILLIGRAM, QD (1 EVERY 1 DAYS)
     Route: 048
  418. OMEGA 3 [Suspect]
     Active Substance: CAPSAICIN
     Dosage: 400 MILLIGRAM, QD (1 EVERY 1 DAYS)
  419. OMEGA 3 [Suspect]
     Active Substance: CAPSAICIN
     Dosage: 400 MILLIGRAM, QD (1 EVERY 1 DAYS)
  420. OMEGA 3 [Suspect]
     Active Substance: CAPSAICIN
     Dosage: 400 MILLIGRAM, QD (1 EVERY 1 DAYS)
     Route: 048
  421. OMEGA 3 [Suspect]
     Active Substance: CAPSAICIN
     Dosage: UNK, QD (1 EVERY 1 DAYS)
  422. OMEGA 3 [Suspect]
     Active Substance: CAPSAICIN
     Dosage: UNK, QD (1 EVERY 1 DAYS)
  423. OMEGA 3 [Suspect]
     Active Substance: CAPSAICIN
     Dosage: UNK, QD (1 EVERY 1 DAYS)
     Route: 048
  424. OMEGA 3 [Suspect]
     Active Substance: CAPSAICIN
     Dosage: UNK, QD (1 EVERY 1 DAYS)
     Route: 048
  425. OMEGA 3 [Suspect]
     Active Substance: CAPSAICIN
  426. OMEGA 3 [Suspect]
     Active Substance: CAPSAICIN
  427. OMEGA 3 [Suspect]
     Active Substance: CAPSAICIN
     Route: 048
  428. OMEGA 3 [Suspect]
     Active Substance: CAPSAICIN
     Route: 048
  429. ROBAXACET [Suspect]
     Active Substance: ACETAMINOPHEN\METHOCARBAMOL
     Indication: Back pain
     Dosage: 900 MILLIGRAM, QD (1 EVERY 1 DAY)
  430. ROBAXACET [Suspect]
     Active Substance: ACETAMINOPHEN\METHOCARBAMOL
     Dosage: 900 MILLIGRAM, QD (1 EVERY 1 DAY)
  431. ROBAXACET [Suspect]
     Active Substance: ACETAMINOPHEN\METHOCARBAMOL
     Dosage: 900 MILLIGRAM, QD (1 EVERY 1 DAY)
     Route: 048
  432. ROBAXACET [Suspect]
     Active Substance: ACETAMINOPHEN\METHOCARBAMOL
     Dosage: 900 MILLIGRAM, QD (1 EVERY 1 DAY)
     Route: 048
  433. ROBAXACET [Suspect]
     Active Substance: ACETAMINOPHEN\METHOCARBAMOL
     Dosage: 400 MILLIGRAM, QD (1 EVERY 1 DAY)
  434. ROBAXACET [Suspect]
     Active Substance: ACETAMINOPHEN\METHOCARBAMOL
     Dosage: 400 MILLIGRAM, QD (1 EVERY 1 DAY)
  435. ROBAXACET [Suspect]
     Active Substance: ACETAMINOPHEN\METHOCARBAMOL
     Dosage: 400 MILLIGRAM, QD (1 EVERY 1 DAY)
     Route: 048
  436. ROBAXACET [Suspect]
     Active Substance: ACETAMINOPHEN\METHOCARBAMOL
     Dosage: 400 MILLIGRAM, QD (1 EVERY 1 DAY)
     Route: 048
  437. ROBAXISAL [Suspect]
     Active Substance: ASPIRIN\METHOCARBAMOL
     Indication: Product used for unknown indication
     Dosage: 500 MILLIGRAM, BID (2 EVERY 1 DAY)
     Route: 048
  438. ROBAXISAL [Suspect]
     Active Substance: ASPIRIN\METHOCARBAMOL
     Dosage: 500 MILLIGRAM, BID (2 EVERY 1 DAY)
  439. ROBAXISAL [Suspect]
     Active Substance: ASPIRIN\METHOCARBAMOL
     Dosage: 500 MILLIGRAM, BID (2 EVERY 1 DAY)
  440. ROBAXISAL [Suspect]
     Active Substance: ASPIRIN\METHOCARBAMOL
     Dosage: 500 MILLIGRAM, BID (2 EVERY 1 DAY)
     Route: 048
  441. ROBAXISAL [Suspect]
     Active Substance: ASPIRIN\METHOCARBAMOL
     Dosage: 400 MILLIGRAM, BID (2 EVERY 1 DAY)
     Route: 048
  442. ROBAXISAL [Suspect]
     Active Substance: ASPIRIN\METHOCARBAMOL
     Dosage: 400 MILLIGRAM, BID (2 EVERY 1 DAY)
  443. ROBAXISAL [Suspect]
     Active Substance: ASPIRIN\METHOCARBAMOL
     Dosage: 400 MILLIGRAM, BID (2 EVERY 1 DAY)
  444. ROBAXISAL [Suspect]
     Active Substance: ASPIRIN\METHOCARBAMOL
     Dosage: 400 MILLIGRAM, BID (2 EVERY 1 DAY)
     Route: 048
  445. ARIPIPRAZOLE [Suspect]
     Active Substance: ARIPIPRAZOLE
     Indication: Schizophrenia
     Dosage: 2 MILLIGRAM, TID (3 EVERY 1 DAY)
  446. ARIPIPRAZOLE [Suspect]
     Active Substance: ARIPIPRAZOLE
     Dosage: 2 MILLIGRAM, TID (3 EVERY 1 DAY)
  447. ARIPIPRAZOLE [Suspect]
     Active Substance: ARIPIPRAZOLE
     Dosage: 2 MILLIGRAM, TID (3 EVERY 1 DAY)
     Route: 048
  448. ARIPIPRAZOLE [Suspect]
     Active Substance: ARIPIPRAZOLE
     Dosage: 2 MILLIGRAM, TID (3 EVERY 1 DAY)
     Route: 048
  449. ARIPIPRAZOLE [Suspect]
     Active Substance: ARIPIPRAZOLE
     Dosage: 5 MILLIGRAM, QD (1 EVERY 1 DAY)
  450. ARIPIPRAZOLE [Suspect]
     Active Substance: ARIPIPRAZOLE
     Dosage: 5 MILLIGRAM, QD (1 EVERY 1 DAY)
  451. ARIPIPRAZOLE [Suspect]
     Active Substance: ARIPIPRAZOLE
     Dosage: 5 MILLIGRAM, QD (1 EVERY 1 DAY)
     Route: 065
  452. ARIPIPRAZOLE [Suspect]
     Active Substance: ARIPIPRAZOLE
     Dosage: 5 MILLIGRAM, QD (1 EVERY 1 DAY)
     Route: 065
  453. VITAMIN D3 [Suspect]
     Active Substance: CHOLECALCIFEROL
     Indication: Vitamin supplementation
     Dosage: UNK, QD (1 EVERY 1 DAYS)
  454. VITAMIN D3 [Suspect]
     Active Substance: CHOLECALCIFEROL
     Dosage: UNK, QD (1 EVERY 1 DAYS)
  455. VITAMIN D3 [Suspect]
     Active Substance: CHOLECALCIFEROL
     Dosage: UNK, QD (1 EVERY 1 DAYS)
     Route: 048
  456. VITAMIN D3 [Suspect]
     Active Substance: CHOLECALCIFEROL
     Dosage: UNK, QD (1 EVERY 1 DAYS)
     Route: 048
  457. VITAMIN D3 [Suspect]
     Active Substance: CHOLECALCIFEROL
     Dosage: 200 INTERNATIONAL UNIT, QD (1 EVERY 1 DAYS)
  458. VITAMIN D3 [Suspect]
     Active Substance: CHOLECALCIFEROL
     Dosage: 200 INTERNATIONAL UNIT, QD (1 EVERY 1 DAYS)
  459. VITAMIN D3 [Suspect]
     Active Substance: CHOLECALCIFEROL
     Dosage: 200 INTERNATIONAL UNIT, QD (1 EVERY 1 DAYS)
     Route: 048
  460. VITAMIN D3 [Suspect]
     Active Substance: CHOLECALCIFEROL
     Dosage: 200 INTERNATIONAL UNIT, QD (1 EVERY 1 DAYS)
     Route: 048

REACTIONS (16)
  - Drug dependence [Recovered/Resolved]
  - Epidural lipomatosis [Recovered/Resolved]
  - Juvenile idiopathic arthritis [Recovered/Resolved]
  - Obesity [Recovered/Resolved]
  - Tenderness [Recovered/Resolved]
  - Respiratory depression [Recovered/Resolved]
  - Drug abuse [Recovered/Resolved]
  - Child abuse [Recovered/Resolved]
  - Drug ineffective [Recovered/Resolved]
  - Intentional product misuse [Recovered/Resolved]
  - Product prescribing error [Recovered/Resolved]
  - Product use in unapproved indication [Recovered/Resolved]
  - Product use issue [Recovered/Resolved]
  - Inappropriate schedule of product administration [Recovered/Resolved]
  - Off label use [Recovered/Resolved]
  - Victim of child abuse [Recovered/Resolved]
